FAERS Safety Report 10292629 (Version 1)
Quarter: 2014Q3

REPORT INFORMATION
  Report Type: Spontaneous
  Country: IT (occurrence: IT)
  Receive Date: 20140710
  Receipt Date: 20140710
  Transmission Date: 20150326
  Serious: Yes (Hospitalization)
  Sender: FDA-Public Use
  Company Number: IT-TEVA-492714ISR

PATIENT
  Age: 46 Year
  Sex: Male

DRUGS (2)
  1. SOLDESAM - LABORATORIO FARMACOLOGICO MILANESE S.R.L. [Suspect]
     Active Substance: DEXAMETHASONE SODIUM PHOSPHATE
     Indication: BACK PAIN
     Dosage: 1 DF DAILY
     Route: 030
     Dates: start: 20140525, end: 20140608
  2. DICLOFENAC [Suspect]
     Active Substance: DICLOFENAC
     Indication: BACK PAIN
     Dosage: 1 DF DAILY
     Route: 030
     Dates: start: 20140525, end: 20140608

REACTIONS (9)
  - Nasopharyngitis [Unknown]
  - Headache [Unknown]
  - Renal failure acute [Unknown]
  - Septic shock [None]
  - Necrotising fasciitis [None]
  - Condition aggravated [None]
  - Hyperpyrexia [Unknown]
  - Incorrect drug administration duration [Unknown]
  - Off label use [None]

NARRATIVE: CASE EVENT DATE: 20140608
